FAERS Safety Report 7458191-4 (Version None)
Quarter: 2011Q2

REPORT INFORMATION
  Report Type: 
  Country: None (occurrence: None)
  Receive Date: 20110503
  Receipt Date: 20110503
  Transmission Date: 20111010
  Serious: Yes (Other)
  Sender: FDA-Public Use
  Company Number: None

PATIENT
  Age: 65 Year
  Sex: Female

DRUGS (2)
  1. NITROFURANTOIN [Suspect]
     Indication: URINARY TRACT INFECTION
     Dosage: 50MG 1 DAILY PO
     Route: 048
     Dates: start: 20110326, end: 20110418
  2. NITROFURANTOIN [Suspect]
     Indication: PROPHYLAXIS
     Dosage: 50MG 1 DAILY PO
     Route: 048
     Dates: start: 20110326, end: 20110418

REACTIONS (2)
  - URINARY TRACT INFECTION [None]
  - PRODUCT SUBSTITUTION ISSUE [None]
